FAERS Safety Report 10676617 (Version 1)
Quarter: 2014Q4

REPORT INFORMATION
  Report Type: Spontaneous
  Country: US (occurrence: None)
  Receive Date: 20141223
  Receipt Date: 20141223
  Transmission Date: 20150529
  Serious: Yes (Disabling)
  Sender: FDA-Public Use
  Company Number: None

PATIENT
  Age: 30 Year
  Sex: Female

DRUGS (1)
  1. NEURONTIN [Suspect]
     Active Substance: GABAPENTIN
     Indication: MOOD SWINGS
     Dosage: 1 PILL, ALMOST 3 YEARS
     Route: 048

REACTIONS (1)
  - Memory impairment [None]

NARRATIVE: CASE EVENT DATE: 20140312
